FAERS Safety Report 8980095 (Version 1)
Quarter: 2012Q4

REPORT INFORMATION
  Report Type: 
  Country: DE (occurrence: DE)
  Receive Date: 20121221
  Receipt Date: 20121221
  Transmission Date: 20130627
  Serious: Yes (Other)
  Sender: FDA-Public Use
  Company Number: PHHY2012DE116153

PATIENT
  Sex: Male

DRUGS (1)
  1. EXFORGE HCT [Suspect]
     Indication: HYPERTENSION
     Dosage: 1 DF (160 mg vals, 10 mg amlo and 25 mg HCTZ), QD
     Route: 048
     Dates: start: 2010

REACTIONS (1)
  - Deep vein thrombosis [Recovering/Resolving]
